FAERS Safety Report 23803489 (Version 1)
Quarter: 2024Q2

REPORT INFORMATION
  Report Type: Spontaneous
  Country: US (occurrence: None)
  Receive Date: 20240430
  Receipt Date: 20240430
  Transmission Date: 20240715
  Serious: No
  Sender: FDA-Public Use
  Company Number: None

PATIENT
  Age: 71 Year
  Sex: Male
  Weight: 69 kg

DRUGS (1)
  1. EMPAGLIFLOZIN [Suspect]
     Active Substance: EMPAGLIFLOZIN
     Dates: start: 20221103, end: 20230119

REACTIONS (10)
  - Hypovolaemic shock [None]
  - Septic shock [None]
  - Urinary tract infection [None]
  - Chronic left ventricular failure [None]
  - Coronary artery disease [None]
  - Acute kidney injury [None]
  - Type 2 diabetes mellitus [None]
  - Neuropathy peripheral [None]
  - Metabolic acidosis [None]
  - Lactic acidosis [None]

NARRATIVE: CASE EVENT DATE: 20230119
